FAERS Safety Report 7006145-4 (Version None)
Quarter: 2010Q3

REPORT INFORMATION
  Report Type: 
  Country: None (occurrence: None)
  Receive Date: 20100921
  Receipt Date: 20100914
  Transmission Date: 20110219
  Serious: Yes (Disabling, Other)
  Sender: FDA-Public Use
  Company Number: AU-PFIZER INC-2010100521

PATIENT
  Age: 26 Year
  Sex: Female
  Weight: 110 kg

DRUGS (1)
  1. CHAMPIX [Suspect]
     Indication: SMOKING CESSATION THERAPY
     Dosage: 1 MG, 2X/DAY
     Route: 048
     Dates: start: 20100324, end: 20100418

REACTIONS (8)
  - ABNORMAL BEHAVIOUR [None]
  - ACTIVITIES OF DAILY LIVING IMPAIRED [None]
  - AGGRESSION [None]
  - ANXIETY [None]
  - DEPRESSED MOOD [None]
  - HOMICIDAL IDEATION [None]
  - IRRITABILITY [None]
  - SCREAMING [None]
